FAERS Safety Report 20856822 (Version 2)
Quarter: 2022Q2

REPORT INFORMATION
  Report Type: Spontaneous
  Country: US (occurrence: US)
  Receive Date: 20220520
  Receipt Date: 20220531
  Transmission Date: 20220721
  Serious: Yes (Other)
  Sender: FDA-Public Use
  Company Number: US-CELLTRION INC.-2022US006589

PATIENT

DRUGS (1)
  1. TRUXIMA [Suspect]
     Active Substance: RITUXIMAB-ABBS
     Indication: Histiocytosis
     Dosage: 770 MG EVERY 4 WEEKS X4
     Dates: start: 20220510

REACTIONS (2)
  - Histiocytosis [Unknown]
  - Off label use [Unknown]
